FAERS Safety Report 4285443-1 (Version None)
Quarter: 2004Q1

REPORT INFORMATION
  Report Type: 
  Country: None (occurrence: None)
  Receive Date: 20040202
  Receipt Date: 20040202
  Transmission Date: 20041129
  Serious: Yes (Hospitalization)
  Sender: FDA-Public Use
  Company Number: None

PATIENT
  Age: 65 Year
  Sex: Female

DRUGS (5)
  1. PHENYTOIN [Suspect]
     Indication: CONVULSION
     Dates: start: 20030820, end: 20030920
  2. ASPIRIN [Concomitant]
  3. DOCUSATE [Concomitant]
  4. RANITIDINE [Concomitant]
  5. RISPERIDONE [Concomitant]

REACTIONS (3)
  - HIP SWELLING [None]
  - RASH ERYTHEMATOUS [None]
  - RASH PRURITIC [None]
